FAERS Safety Report 8497878-1 (Version None)
Quarter: 2012Q3

REPORT INFORMATION
  Report Type: 
  Country: None (occurrence: None)
  Receive Date: 20120709
  Receipt Date: 20120615
  Transmission Date: 20120928
  Serious: No
  Sender: FDA-Public Use
  Company Number: US-AMGEN-USASP2012037379

PATIENT
  Sex: Female

DRUGS (2)
  1. REVLIMID [Concomitant]
     Dosage: UNK
  2. ENBREL [Suspect]
     Indication: ARTHROPATHY
     Dosage: 50 MG, QWK

REACTIONS (1)
  - VERTIGO [None]
